FAERS Safety Report 6109623-5 (Version None)
Quarter: 2009Q1

REPORT INFORMATION
  Report Type: 
  Country: None (occurrence: None)
  Receive Date: 20090306
  Receipt Date: 20090306
  Transmission Date: 20090719
  Serious: No
  Sender: FDA-Public Use
  Company Number: None

PATIENT
  Age: 62 Year
  Sex: Female
  Weight: 104.3273 kg

DRUGS (1)
  1. CYMBALTA [Suspect]
     Indication: CERVICAL ROOT PAIN
     Dosage: 1 ONCE A DAY PO
     Route: 048
     Dates: start: 20050315, end: 20090305

REACTIONS (11)
  - BLOOD PRESSURE INCREASED [None]
  - DIARRHOEA [None]
  - DRUG DEPENDENCE [None]
  - DRUG WITHDRAWAL SYNDROME [None]
  - INAPPROPRIATE SCHEDULE OF DRUG ADMINISTRATION [None]
  - MALAISE [None]
  - NAUSEA [None]
  - PHOTOPSIA [None]
  - THINKING ABNORMAL [None]
  - VOMITING PROJECTILE [None]
  - WEIGHT INCREASED [None]
